FAERS Safety Report 14957217 (Version 1)
Quarter: 2018Q2

REPORT INFORMATION
  Report Type: Spontaneous
  Country: US (occurrence: US)
  Receive Date: 20180531
  Receipt Date: 20180531
  Transmission Date: 20180711
  Serious: No
  Sender: FDA-Public Use
  Company Number: US-ASTRAZENECA-2018SE67056

PATIENT
  Sex: Female

DRUGS (2)
  1. BYDUREON BCISE [Suspect]
     Active Substance: EXENATIDE
     Route: 058
     Dates: start: 201805
  2. BYDUREON [Suspect]
     Active Substance: EXENATIDE
     Route: 058

REACTIONS (2)
  - Thyroid calcification [Unknown]
  - Thyroid mass [Unknown]
